FAERS Safety Report 5726955-0 (Version None)
Quarter: 2008Q2

REPORT INFORMATION
  Report Type: 
  Country: None (occurrence: None)
  Receive Date: 20080502
  Receipt Date: 20080421
  Transmission Date: 20081010
  Serious: Yes (Other)
  Sender: FDA-Public Use
  Company Number: US-PFIZER INC-001-0073-M0100134

PATIENT
  Sex: Female
  Weight: 50.3 kg

DRUGS (14)
  1. DILANTIN [Interacting]
     Indication: GRAND MAL CONVULSION
     Route: 048
  2. DILANTIN [Interacting]
     Indication: EPILEPSY
  3. NEURONTIN [Suspect]
     Indication: CONVULSION
     Dosage: DAILY DOSE:300MG-FREQ:UNKNOWN
     Route: 048
     Dates: start: 20010226, end: 20010301
  4. ZYRTEC [Suspect]
     Indication: URTICARIA
     Route: 048
  5. SYNTHROID [Interacting]
     Indication: HYPOTHYROIDISM
     Route: 048
  6. SYNTHROID [Interacting]
     Indication: THYROID DISORDER
  7. COLD-EEZE /PRI/ [Interacting]
     Indication: MULTIPLE ALLERGIES
  8. CENTRUM [Concomitant]
  9. TUMS [Concomitant]
  10. KEPPRA [Concomitant]
  11. LEVOTHYROXINE SODIUM [Concomitant]
  12. CALCIUM [Concomitant]
  13. MULTI-VITAMINS [Concomitant]
  14. ALLERGY MEDICATION [Concomitant]

REACTIONS (30)
  - AMNESIA [None]
  - ANTICONVULSANT DRUG LEVEL INCREASED [None]
  - BALANCE DISORDER [None]
  - BLOOD THYROID STIMULATING HORMONE INCREASED [None]
  - BODY HEIGHT DECREASED [None]
  - BODY HEIGHT INCREASED [None]
  - BURNING SENSATION [None]
  - CONVULSION [None]
  - COORDINATION ABNORMAL [None]
  - DIARRHOEA [None]
  - DRUG INEFFECTIVE [None]
  - DRUG INTERACTION [None]
  - EAR PAIN [None]
  - EYE IRRITATION [None]
  - HAIR GROWTH ABNORMAL [None]
  - HEADACHE [None]
  - HYPOAESTHESIA [None]
  - INSOMNIA [None]
  - MOUTH HAEMORRHAGE [None]
  - OEDEMA PERIPHERAL [None]
  - ORAL DISCOMFORT [None]
  - PRURITUS [None]
  - SLEEP DISORDER [None]
  - SOMNOLENCE [None]
  - THYROIDECTOMY [None]
  - TREMOR [None]
  - URTICARIA [None]
  - VISION BLURRED [None]
  - WEIGHT DECREASED [None]
  - WEIGHT INCREASED [None]
